FAERS Safety Report 7476991-1 (Version None)
Quarter: 2011Q2

REPORT INFORMATION
  Report Type: 
  Country: None (occurrence: None)
  Receive Date: 20110512
  Receipt Date: 20101105
  Transmission Date: 20111010
  Serious: No
  Sender: FDA-Public Use
  Company Number: US-BAYER-201040587NA

PATIENT
  Age: 75 Year
  Sex: Male

DRUGS (3)
  1. AVELOX [Suspect]
     Indication: INFECTION
     Dosage: 400 MG, QD
     Route: 048
     Dates: start: 20100922, end: 20100922
  2. LIPRINOSIL [Concomitant]
  3. REVLIMID [Concomitant]

REACTIONS (2)
  - DRUG HYPERSENSITIVITY [None]
  - ABDOMINAL PAIN UPPER [None]
